FAERS Safety Report 15355391 (Version 1)
Quarter: 2018Q4

REPORT INFORMATION
  Report Type: Spontaneous
  Country: FR (occurrence: FR)
  Receive Date: 20180906
  Receipt Date: 20180906
  Transmission Date: 20190204
  Serious: Yes (Death)
  Sender: FDA-Public Use
  Company Number: FR-AXELLIA-001938

PATIENT
  Age: 73 Year
  Sex: Female
  Weight: 86.4 kg

DRUGS (11)
  1. TOBRAMYCIN. [Suspect]
     Active Substance: TOBRAMYCIN
     Indication: LUNG INFECTION
     Route: 042
     Dates: start: 20180803, end: 20180813
  2. ATARAX [Suspect]
     Active Substance: HYDROXYZINE HYDROCHLORIDE
     Indication: ANXIETY
     Route: 042
     Dates: start: 20180730, end: 20180815
  3. NOREPINEPHRINE. [Suspect]
     Active Substance: NOREPINEPHRINE
     Indication: SUPPORTIVE CARE
     Route: 042
     Dates: start: 20180802, end: 20180817
  4. TRAMADOL. [Suspect]
     Active Substance: TRAMADOL
     Indication: PAIN
     Route: 048
     Dates: start: 20180725, end: 20180816
  5. VANCOMYCIN [Suspect]
     Active Substance: VANCOMYCIN
     Indication: LUNG INFECTION
     Route: 042
     Dates: start: 20180730, end: 20180816
  6. FUMAFER [Suspect]
     Active Substance: FERROUS FUMARATE
     Indication: IRON DEFICIENCY
     Route: 048
     Dates: start: 20180717, end: 20180817
  7. KARDEGIC [Suspect]
     Active Substance: ASPIRIN DL-LYSINE
     Indication: ISCHAEMIC HEART DISEASE PROPHYLAXIS
     Route: 048
     Dates: start: 20180504, end: 20180816
  8. NEURONTIN [Suspect]
     Active Substance: GABAPENTIN
     Indication: NEURALGIA
     Route: 048
     Dates: start: 20180802, end: 20180816
  9. ABSTRAL [Suspect]
     Active Substance: FENTANYL CITRATE
     Indication: PAIN
     Route: 060
     Dates: start: 20180730, end: 20180817
  10. DEROXAT [Suspect]
     Active Substance: PAROXETINE HYDROCHLORIDE
     Indication: DEPRESSION
     Route: 048
     Dates: start: 20180618, end: 20180816
  11. CEFTOLOZANE/TAZOBACTAM [Suspect]
     Active Substance: CEFTOLOZANE SULFATE\TAZOBACTAM SODIUM
     Indication: LUNG INFECTION
     Route: 042
     Dates: start: 20180804, end: 20180816

REACTIONS (2)
  - Renal failure [Fatal]
  - Encephalopathy [Fatal]

NARRATIVE: CASE EVENT DATE: 20180811
